FAERS Safety Report 6644956-5 (Version None)
Quarter: 2010Q1

REPORT INFORMATION
  Report Type: 
  Country: None (occurrence: None)
  Receive Date: 20100322
  Receipt Date: 20100310
  Transmission Date: 20100710
  Serious: Yes (Other)
  Sender: FDA-Public Use
  Company Number: PHHY2010BR14905

PATIENT
  Age: 49 Year
  Sex: Male
  Weight: 110 kg

DRUGS (3)
  1. DIOVAN [Suspect]
     Indication: HYPERTENSION
     Dosage: 160 MG, 1 DF DAILY
     Route: 048
  2. DIOVAN [Suspect]
     Dosage: 320 MG, 1 DF IN MORNING
     Route: 048
     Dates: start: 20100301
  3. DIOVAN [Suspect]
     Dosage: 320 MG, 0.5 DF IN FASTING
     Route: 048
     Dates: start: 20100311

REACTIONS (5)
  - ABDOMINAL DISCOMFORT [None]
  - ABDOMINAL PAIN [None]
  - DYSPEPSIA [None]
  - GASTRIC DISORDER [None]
  - HYPERTENSION [None]
